FAERS Safety Report 23424473 (Version 2)
Quarter: 2024Q4

REPORT INFORMATION
  Report Type: Spontaneous
  Country: US (occurrence: US)
  Receive Date: 20240120
  Receipt Date: 20241104
  Transmission Date: 20250115
  Serious: No
  Sender: AMGEN
  Company Number: US-AMGEN-USASP2024012197

PATIENT
  Age: 80 Year
  Sex: Female

DRUGS (2)
  1. REPATHA [Suspect]
     Active Substance: EVOLOCUMAB
     Indication: Blood cholesterol abnormal
     Dosage: UNK
     Route: 065
  2. REPATHA [Suspect]
     Active Substance: EVOLOCUMAB
     Dosage: 140 MILLIGRAM, Q2WK
     Route: 065
     Dates: start: 202312

REACTIONS (5)
  - Drug dose omission by device [Unknown]
  - Respiratory syncytial virus infection [Recovered/Resolved]
  - Device difficult to use [Unknown]
  - Therapy interrupted [Unknown]
  - Injection site pain [Unknown]

NARRATIVE: CASE EVENT DATE: 20240114
